FAERS Safety Report 18330481 (Version 2)
Quarter: 2020Q4

REPORT INFORMATION
  Report Type: Spontaneous
  Country: US (occurrence: US)
  Receive Date: 20200930
  Receipt Date: 20201221
  Transmission Date: 20210113
  Serious: No
  Sender: FDA-Public Use
  Company Number: US-ALLERGAN-2034067US

PATIENT
  Age: 72 Year
  Sex: Male

DRUGS (4)
  1. AZOPT [Concomitant]
     Active Substance: BRINZOLAMIDE
     Indication: GLAUCOMA
     Route: 047
  2. LUMIGAN [Concomitant]
     Active Substance: BIMATOPROST
     Indication: GLAUCOMA
     Route: 047
  3. TIMOLOL. [Concomitant]
     Active Substance: TIMOLOL
     Indication: GLAUCOMA
  4. DURYSTA [Suspect]
     Active Substance: BIMATOPROST
     Indication: GLAUCOMA
     Dosage: UNK, SINGLE
     Route: 031
     Dates: start: 20200814

REACTIONS (3)
  - Intraocular pressure fluctuation [Not Recovered/Not Resolved]
  - Drug ineffective [Unknown]
  - Eye inflammation [Unknown]

NARRATIVE: CASE EVENT DATE: 202008
